FAERS Safety Report 16018020 (Version 3)
Quarter: 2019Q1

REPORT INFORMATION
  Report Type: Spontaneous
  Country: US (occurrence: US)
  Receive Date: 20190228
  Receipt Date: 20190321
  Transmission Date: 20190418
  Serious: Yes (Death)
  Sender: FDA-Public Use
  Company Number: US-BIOVITRUM-2019US0366

PATIENT
  Age: 11 Year
  Sex: Male

DRUGS (1)
  1. GAMIFANT [Suspect]
     Active Substance: EMAPALUMAB-LZSG
     Indication: HAEMOPHAGOCYTIC LYMPHOHISTIOCYTOSIS
     Route: 042
     Dates: start: 20190213, end: 20190213

REACTIONS (1)
  - Death [Fatal]

NARRATIVE: CASE EVENT DATE: 20190216
